FAERS Safety Report 13946207 (Version 1)
Quarter: 2017Q3

REPORT INFORMATION
  Report Type: Spontaneous
  Country: IN (occurrence: IN)
  Receive Date: 20170907
  Receipt Date: 20170907
  Transmission Date: 20171128
  Serious: Yes (Death)
  Sender: FDA-Public Use
  Company Number: IN-ASTRAZENECA-2017SE90574

PATIENT
  Age: 16674 Day
  Sex: Female

DRUGS (1)
  1. TAGRISSO [Suspect]
     Active Substance: OSIMERTINIB
     Indication: LUNG CARCINOMA CELL TYPE UNSPECIFIED STAGE IV
     Dosage: 80.0MG UNKNOWN
     Route: 048
     Dates: start: 20170718, end: 20170830

REACTIONS (2)
  - Malignant neoplasm progression [Fatal]
  - Metastases to bone marrow [Fatal]

NARRATIVE: CASE EVENT DATE: 20170718
